FAERS Safety Report 5765035-5 (Version None)
Quarter: 2008Q2

REPORT INFORMATION
  Report Type: 
  Country: None (occurrence: None)
  Receive Date: 20080611
  Receipt Date: 20080603
  Transmission Date: 20081010
  Serious: Yes (Other)
  Sender: FDA-Public Use
  Company Number: US-ASTRAZENECA-2008UW11176

PATIENT
  Age: 65 Year
  Sex: Female
  Weight: 90.7 kg

DRUGS (6)
  1. ATACAND [Suspect]
     Indication: HYPERTENSION
     Route: 048
     Dates: start: 20070101
  2. NEXIUM [Suspect]
     Route: 048
  3. TOPROL-XL [Suspect]
     Route: 048
     Dates: start: 20040101
  4. CALCIUM WITH VITAMIN D [Concomitant]
  5. LEVOXYL [Concomitant]
  6. MOBIC [Concomitant]

REACTIONS (8)
  - ANAEMIA [None]
  - BONE DENSITY DECREASED [None]
  - DIZZINESS [None]
  - DYSPNOEA [None]
  - HAEMATOCRIT DECREASED [None]
  - HAEMOGLOBIN DECREASED [None]
  - MALABSORPTION [None]
  - NEUROPATHY PERIPHERAL [None]
